FAERS Safety Report 16705945 (Version 4)
Quarter: 2020Q1

REPORT INFORMATION
  Report Type: Spontaneous
  Country: US (occurrence: US)
  Receive Date: 20190815
  Receipt Date: 20200319
  Transmission Date: 20200409
  Serious: No
  Sender: FDA-Public Use
  Company Number: US-BAYER-2019-150918

PATIENT
  Age: 15 Year
  Sex: Male
  Weight: 71.84 kg

DRUGS (1)
  1. JIVI [Suspect]
     Active Substance: DAMOCTOCOG ALFA PEGOL
     Indication: FACTOR VIII DEFICIENCY
     Dosage: 6238 U
     Route: 042
     Dates: start: 20190227, end: 201907

REACTIONS (2)
  - Product administration error [None]
  - Therapeutic product effect incomplete [None]

NARRATIVE: CASE EVENT DATE: 201907
